FAERS Safety Report 20169550 (Version 1)
Quarter: 2021Q4

REPORT INFORMATION
  Report Type: Report from Study
  Country: GR (occurrence: GR)
  Receive Date: 20211210
  Receipt Date: 20211210
  Transmission Date: 20220304
  Serious: Yes (Other)
  Sender: FDA-Public Use
  Company Number: GR-MYLANLABS-2021M1089472

PATIENT
  Age: 68 Year
  Sex: Male

DRUGS (1)
  1. GLATIRAMER [Suspect]
     Active Substance: GLATIRAMER
     Indication: Multiple sclerosis
     Dosage: 20 MILLIGRAM PER MILLILITRE, 3XW (DAILY)
     Route: 058
     Dates: start: 20201230, end: 202110

REACTIONS (1)
  - Drug ineffective [Unknown]
